FAERS Safety Report 6344488-8 (Version None)
Quarter: 2009Q3

REPORT INFORMATION
  Report Type: 
  Country: None (occurrence: None)
  Receive Date: 20090908
  Receipt Date: 20090825
  Transmission Date: 20100115
  Serious: Yes (Other)
  Sender: FDA-Public Use
  Company Number: IE-PFIZER INC-2009259753

PATIENT
  Age: 6 Week

DRUGS (1)
  1. DIFLUCAN [Suspect]
     Indication: CANDIDIASIS
     Dosage: 200 MG, UNK
     Route: 063

REACTIONS (2)
  - CANDIDIASIS [None]
  - DRUG EXPOSURE VIA BREAST MILK [None]
